FAERS Safety Report 7247760-2 (Version None)
Quarter: 2011Q1

REPORT INFORMATION
  Report Type: 
  Country: None (occurrence: None)
  Receive Date: 20110127
  Receipt Date: 20110126
  Transmission Date: 20110831
  Serious: Yes (Life-Threatening, Hospitalization, Other)
  Sender: FDA-Public Use
  Company Number: PHHO2010DE19281

PATIENT
  Sex: Female
  Weight: 66 kg

DRUGS (6)
  1. THYRONAJOD [Concomitant]
     Indication: HYPOTHYROIDISM
     Dosage: UNK
  2. KEPPRA [Concomitant]
     Indication: EPILEPSY
  3. SULFADIAZINE [Suspect]
  4. DIOVAN [Concomitant]
     Indication: HYPERTENSION
  5. FTY 720 [Suspect]
     Indication: MULTIPLE SCLEROSIS
     Dosage: 0.5MG DAILY
     Route: 048
     Dates: start: 20100920, end: 20101220
  6. NEBIVOLOL [Concomitant]
     Indication: HYPERTENSION

REACTIONS (25)
  - BRAIN MASS [None]
  - APHASIA [None]
  - DYSAESTHESIA [None]
  - HYPERAESTHESIA [None]
  - VERTIGO [None]
  - RENAL FAILURE ACUTE [None]
  - HEMIPARESIS [None]
  - HYPERTONIA [None]
  - BRAIN OEDEMA [None]
  - MOVEMENT DISORDER [None]
  - RENAL HYPERTROPHY [None]
  - CEREBRAL TOXOPLASMOSIS [None]
  - ABASIA [None]
  - BACK PAIN [None]
  - SCOTOMA [None]
  - CENTRAL NERVOUS SYSTEM LESION [None]
  - MYOCLONUS [None]
  - OSCILLOPSIA [None]
  - TUBULOINTERSTITIAL NEPHRITIS [None]
  - BLOOD CREATININE INCREASED [None]
  - OPTIC NEURITIS [None]
  - PARAESTHESIA [None]
  - HYPOAESTHESIA [None]
  - MULTIPLE SCLEROSIS RELAPSE [None]
  - EPSTEIN-BARR VIRUS INFECTION [None]
